FAERS Safety Report 6089134-6 (Version None)
Quarter: 2009Q1

REPORT INFORMATION
  Report Type: 
  Country: None (occurrence: None)
  Receive Date: 20090224
  Receipt Date: 20090213
  Transmission Date: 20090719
  Serious: Yes (Death, Hospitalization)
  Sender: FDA-Public Use
  Company Number: US-AMGEN-US334276

PATIENT
  Age: 37 Year
  Sex: Male

DRUGS (2)
  1. EPOGEN [Suspect]
  2. PHENYTOIN [Concomitant]

REACTIONS (3)
  - CARDIAC DISORDER [None]
  - PORPHYRIA [None]
  - STATUS EPILEPTICUS [None]
